FAERS Safety Report 18474109 (Version 1)
Quarter: 2020Q4

REPORT INFORMATION
  Report Type: Spontaneous
  Country: US (occurrence: US)
  Receive Date: 20201106
  Receipt Date: 20201106
  Transmission Date: 20210114
  Serious: Yes (Death)
  Sender: FDA-Public Use
  Company Number: None

PATIENT
  Age: 50 Year
  Sex: Female
  Weight: 75.3 kg

DRUGS (16)
  1. PROMETHAZINE [Concomitant]
     Active Substance: PROMETHAZINE HYDROCHLORIDE
  2. MEKTOVI [Suspect]
     Active Substance: BINIMETINIB
     Indication: MALIGNANT MELANOMA
     Route: 048
     Dates: start: 20200507, end: 20201106
  3. BRAFTOVI [Suspect]
     Active Substance: ENCORAFENIB
     Indication: MALIGNANT MELANOMA
     Route: 048
     Dates: start: 20200507, end: 20201106
  4. ACETAMINOPHEN. [Concomitant]
     Active Substance: ACETAMINOPHEN
  5. CITALOPRAM [Concomitant]
     Active Substance: CITALOPRAM HYDROBROMIDE
  6. MORPHINE [Concomitant]
     Active Substance: MORPHINE
  7. SUCRALFATE. [Concomitant]
     Active Substance: SUCRALFATE
  8. CALCITONIN [Concomitant]
     Active Substance: CALCITONIN
  9. ONDANSETRON [Concomitant]
     Active Substance: ONDANSETRON
  10. LORATADINE. [Concomitant]
     Active Substance: LORATADINE
  11. BACLOFEN. [Concomitant]
     Active Substance: BACLOFEN
  12. HYDROCORTISONE. [Concomitant]
     Active Substance: HYDROCORTISONE
  13. MAGNESIUM HYDROXIDE. [Concomitant]
     Active Substance: MAGNESIUM HYDROXIDE
  14. DRONABINOL. [Concomitant]
     Active Substance: DRONABINOL
  15. HYDROXYZINE PAMOATE. [Concomitant]
     Active Substance: HYDROXYZINE PAMOATE
  16. POTASSIUM CHLORIDE. [Concomitant]
     Active Substance: POTASSIUM CHLORIDE

REACTIONS (1)
  - Death [None]

NARRATIVE: CASE EVENT DATE: 20201106
